FAERS Safety Report 18971234 (Version 2)
Quarter: 2021Q1

REPORT INFORMATION
  Report Type: Report from Study
  Country: JP (occurrence: JP)
  Receive Date: 20210304
  Receipt Date: 20210318
  Transmission Date: 20210420
  Serious: Yes (Hospitalization, Other)
  Sender: FDA-Public Use
  Company Number: JP-B.I. PHARMACEUTICALS,INC./RIDGEFIELD-2021-BI-086007

PATIENT
  Age: 76 Year
  Sex: Female
  Weight: 60.9 kg

DRUGS (7)
  1. AFATINIB [Suspect]
     Active Substance: AFATINIB
     Indication: NON-SMALL CELL LUNG CANCER
     Route: 048
     Dates: start: 20180911
  2. HUSTAZOL [CLOPERASTINE FENDIZOATE] [Concomitant]
     Active Substance: CLOPERASTINE FENDIZOATE
     Indication: COUGH
     Route: 048
     Dates: start: 20201110, end: 20210104
  3. AZUNOL GARGLE LIQUID [Concomitant]
     Indication: STOMATITIS
     Route: 065
     Dates: start: 20181023
  4. AFATINIB [Suspect]
     Active Substance: AFATINIB
     Route: 048
     Dates: start: 20181010
  5. AFTACH [Concomitant]
     Active Substance: TRIAMCINOLONE
     Indication: STOMATITIS
     Route: 065
     Dates: start: 20181023
  6. AFATINIB [Suspect]
     Active Substance: AFATINIB
     Route: 048
     Dates: start: 20181117, end: 202012
  7. AFATINIB [Suspect]
     Active Substance: AFATINIB
     Route: 048
     Dates: end: 20210105

REACTIONS (5)
  - Paronychia [Unknown]
  - Diarrhoea [Unknown]
  - Dermatitis acneiform [Unknown]
  - Acute promyelocytic leukaemia [Recovering/Resolving]
  - Skin disorder [Unknown]

NARRATIVE: CASE EVENT DATE: 20210122
